FAERS Safety Report 10613771 (Version 2)
Quarter: 2014Q4

REPORT INFORMATION
  Report Type: Spontaneous
  Country: US (occurrence: US)
  Receive Date: 20141128
  Receipt Date: 20141224
  Transmission Date: 20150529
  Serious: Yes (Death, Other)
  Sender: FDA-Public Use
  Company Number: US-PFIZER INC-2014326506

PATIENT
  Age: 80 Year
  Sex: Male

DRUGS (7)
  1. CALCIUM-VITAMIN D 600+ [Concomitant]
     Dosage: ONCE DAILY
  2. PRAVASTATIN [Concomitant]
     Active Substance: PRAVASTATIN\PRAVASTATIN SODIUM
     Dosage: 40 MG, DAILY (40MG 1 DAILY)
  3. SUTENT [Suspect]
     Active Substance: SUNITINIB MALATE
     Dosage: 37.5 MG, (1 DAILY FOR 2 WEEKS THEN 1 WEEK OFF )
     Dates: start: 2014, end: 2014
  4. FENTANYL. [Concomitant]
     Active Substance: FENTANYL
     Dosage: 25 MG, @ 3 DAYS)
     Route: 062
  5. LACTULOSE. [Concomitant]
     Active Substance: LACTULOSE
     Dosage: UNK, AS NEEDED (10G/15MG SYRUP @ 4 HRS AS NEEDED)
  6. SUTENT [Suspect]
     Active Substance: SUNITINIB MALATE
     Indication: RENAL CANCER STAGE IV
     Dosage: 50 MG, 1 DAILY FOR 2 WEEKS THEN 1 WEEK OFF )
     Dates: start: 20140722, end: 2014
  7. LISINOPRIL. [Concomitant]
     Active Substance: LISINOPRIL
     Dosage: UNK, DAILY (1-10MG 1 DAILY)

REACTIONS (11)
  - Constipation [Unknown]
  - Eating disorder [Unknown]
  - Abdominal pain [Unknown]
  - Renal cancer stage IV [Fatal]
  - Salivary hypersecretion [Unknown]
  - Diverticulitis [Unknown]
  - Weight decreased [Unknown]
  - Foreign body [Unknown]
  - Nausea [Unknown]
  - Disease progression [Fatal]
  - Urinary tract infection [Unknown]

NARRATIVE: CASE EVENT DATE: 2014
